FAERS Safety Report 18112761 (Version 2)
Quarter: 2020Q3

REPORT INFORMATION
  Report Type: Spontaneous
  Country: US (occurrence: US)
  Receive Date: 20200805
  Receipt Date: 20200812
  Transmission Date: 20201103
  Serious: No
  Sender: FDA-Public Use
  Company Number: US-SA-2020SA198784

PATIENT

DRUGS (14)
  1. MONTELUKAST SODIUM. [Concomitant]
     Active Substance: MONTELUKAST SODIUM
     Dosage: UNK
  2. FLONASE ALLERGY RELIEF [Concomitant]
     Active Substance: FLUTICASONE PROPIONATE
  3. PREDNISONE. [Concomitant]
     Active Substance: PREDNISONE
  4. ALBUTEROL SULFATE. [Concomitant]
     Active Substance: ALBUTEROL SULFATE
  5. DUPIXENT [Suspect]
     Active Substance: DUPILUMAB
     Indication: ASTHMA
     Dosage: 600 MG, 1X
     Route: 058
  6. EPIPEN [Concomitant]
     Active Substance: EPINEPHRINE
     Dosage: UNK
  7. CROMOLYN SODIUM. [Concomitant]
     Active Substance: CROMOLYN SODIUM
  8. DUPIXENT [Suspect]
     Active Substance: DUPILUMAB
     Indication: STATUS ASTHMATICUS
     Dosage: 300 MG, QOW
     Route: 058
     Dates: start: 20200629
  9. PROAIR HFA [Concomitant]
     Active Substance: ALBUTEROL SULFATE
  10. ESOMEPRAZOLE MAGNESIUM. [Concomitant]
     Active Substance: ESOMEPRAZOLE MAGNESIUM
  11. MULTIVITAMINS [VITAMINS NOS] [Concomitant]
     Active Substance: VITAMINS
  12. JUBLIA [Concomitant]
     Active Substance: EFINACONAZOLE
  13. ADVAIR HFA [Concomitant]
     Active Substance: FLUTICASONE PROPIONATE\SALMETEROL XINAFOATE
  14. AZELASTINE HCL [Concomitant]
     Active Substance: AZELASTINE HYDROCHLORIDE
     Dosage: DROPS

REACTIONS (6)
  - Chest discomfort [Unknown]
  - Wheezing [Unknown]
  - Headache [Unknown]
  - Dyspnoea [Unknown]
  - Cough [Unknown]
  - Product use issue [Unknown]

NARRATIVE: CASE EVENT DATE: 202006
